FAERS Safety Report 9176456 (Version 1)
Quarter: 2013Q1

REPORT INFORMATION
  Report Type: Spontaneous
  Country: US (occurrence: None)
  Receive Date: 20130320
  Receipt Date: 20130320
  Transmission Date: 20140127
  Serious: Yes (Life-Threatening, Hospitalization, Other)
  Sender: FDA-Public Use
  Company Number: None

PATIENT
  Sex: Female
  Weight: 44.45 kg

DRUGS (1)
  1. GENERIC TRILEPTAL [Suspect]
     Indication: CONVULSION
     Dosage: TRILEPTAL 300 BID ORAL
     Route: 048
     Dates: start: 2010

REACTIONS (2)
  - Product substitution issue [None]
  - Convulsion [None]
